FAERS Safety Report 6417200-1 (Version None)
Quarter: 2009Q4

REPORT INFORMATION
  Report Type: 
  Country: None (occurrence: None)
  Receive Date: 20091028
  Receipt Date: 20091025
  Transmission Date: 20100525
  Serious: Yes (Hospitalization)
  Sender: FDA-Public Use
  Company Number: US-B.I. PHARMACEUTICALS,INC./RIDGEFIELD-2009-BP-12427BP

PATIENT
  Sex: Female

DRUGS (11)
  1. SPIRIVA [Suspect]
     Indication: CHRONIC OBSTRUCTIVE PULMONARY DISEASE
     Dosage: 18 MCG
     Route: 055
     Dates: start: 20080101, end: 20090501
  2. SPIRIVA [Suspect]
     Indication: EMPHYSEMA
  3. COMBIVENT [Concomitant]
     Indication: CHRONIC OBSTRUCTIVE PULMONARY DISEASE
  4. COMBIVENT [Concomitant]
     Indication: EMPHYSEMA
  5. FLOVENT [Concomitant]
     Indication: CHRONIC OBSTRUCTIVE PULMONARY DISEASE
  6. FLOVENT [Concomitant]
     Indication: EMPHYSEMA
  7. PLAVIX [Concomitant]
     Indication: CARDIAC DISORDER
  8. LOVASTATIN [Concomitant]
     Indication: PROPHYLAXIS
  9. VITAMIN B-12 [Concomitant]
     Indication: ROUTINE HEALTH MAINTENANCE
  10. MULTI-VITAMIN [Concomitant]
     Indication: ROUTINE HEALTH MAINTENANCE
  11. CALCIUM [Concomitant]
     Indication: BONE DISORDER

REACTIONS (3)
  - DECREASED APPETITE [None]
  - DRUG INEFFECTIVE [None]
  - MALAISE [None]
